FAERS Safety Report 24726113 (Version 1)
Quarter: 2024Q4

REPORT INFORMATION
  Report Type: Spontaneous
  Country: US (occurrence: US)
  Receive Date: 20241212
  Receipt Date: 20241212
  Transmission Date: 20250115
  Serious: No
  Sender: TORRENT PHARMA INC.
  Company Number: US-TORRENT-00013892

PATIENT
  Sex: Male

DRUGS (1)
  1. ZOLPIDEM TARTRATE [Suspect]
     Active Substance: ZOLPIDEM TARTRATE
     Indication: Product used for unknown indication
     Dosage: SHAPED ORANGE PILL
     Route: 065

REACTIONS (1)
  - Wrong technique in product usage process [Unknown]
